FAERS Safety Report 5167135-X (Version None)
Quarter: 2006Q4

REPORT INFORMATION
  Report Type: 
  Country: None (occurrence: None)
  Receive Date: 20061130
  Receipt Date: 20031017
  Transmission Date: 20070319
  Serious: Yes (Hospitalization)
  Sender: FDA-Public Use
  Company Number: 23100350

PATIENT
  Age: 14 Year
  Sex: Male

DRUGS (2)
  1. ARGATROBAN [Suspect]
  2. OXYCODONE HCL [Suspect]

REACTIONS (1)
  - PANCREATITIS [None]
